FAERS Safety Report 6879297-4 (Version None)
Quarter: 2010Q3

REPORT INFORMATION
  Report Type: 
  Country: None (occurrence: None)
  Receive Date: 20100728
  Receipt Date: 20100709
  Transmission Date: 20110219
  Serious: Yes (Life-Threatening, Hospitalization)
  Sender: FDA-Public Use
  Company Number: NL-SANOFI-AVENTIS-2010SA033153

PATIENT
  Age: 22 Year
  Sex: Female

DRUGS (4)
  1. FEXOFENADINE HCL [Suspect]
     Dates: start: 20100502, end: 20100503
  2. ORAL CONTRACEPTIVE NOS [Concomitant]
     Dates: start: 20060619
  3. ALL OTHER THERAPEUTIC PRODUCTS [Concomitant]
     Dates: start: 20100514
  4. OXAZEPAM [Concomitant]

REACTIONS (1)
  - VENTRICULAR FIBRILLATION [None]
